FAERS Safety Report 4706922-6 (Version None)
Quarter: 2005Q2

REPORT INFORMATION
  Report Type: 
  Country: None (occurrence: None)
  Receive Date: 20050630
  Receipt Date: 20050621
  Transmission Date: 20051028
  Serious: Yes (Other)
  Sender: FDA-Public Use
  Company Number: 2005S1000979

PATIENT
  Age: 54 Year
  Sex: Female

DRUGS (13)
  1. FENTANYL [Suspect]
     Indication: NEUROPATHY PERIPHERAL
     Dosage: 100 MCG/HR; TDER
     Route: 062
     Dates: start: 20050224, end: 20050225
  2. FENOFIBRATE [Concomitant]
  3. METFORMIN [Concomitant]
  4. PRAMIPEXOLE [Concomitant]
  5. DIHYDROCHLORIDE [Concomitant]
  6. PANTOPRAZOLE [Concomitant]
  7. IRBESARTAN [Concomitant]
  8. BISOPROLOL FUMARATE AND HYDROCHLOROTHIAZIDE [Concomitant]
  9. ATORVASTATIN CALCIUM [Concomitant]
  10. POTASSIUM CHLORIDE [Concomitant]
  11. GABAPENTIN [Concomitant]
  12. FUROSEMIDE [Concomitant]
  13. IRON SULFATETHIAMIN COMPOUND TAB [Concomitant]

REACTIONS (4)
  - DIZZINESS [None]
  - FEELING JITTERY [None]
  - NAUSEA [None]
  - THERAPEUTIC RESPONSE INCREASED [None]
